FAERS Safety Report 6161389-9 (Version None)
Quarter: 2009Q2

REPORT INFORMATION
  Report Type: 
  Country: None (occurrence: None)
  Receive Date: 20090417
  Receipt Date: 20090417
  Transmission Date: 20091009
  Serious: Yes (Death, Other)
  Sender: FDA-Public Use
  Company Number: None

PATIENT
  Sex: Female
  Weight: 77.1115 kg

DRUGS (2)
  1. ABILIFY [Suspect]
     Indication: ANXIETY
     Dates: start: 20090310, end: 20090329
  2. XANAX [Concomitant]

REACTIONS (7)
  - APHASIA [None]
  - EYELID FUNCTION DISORDER [None]
  - EYES SUNKEN [None]
  - LACRIMATION INCREASED [None]
  - MOVEMENT DISORDER [None]
  - PARALYSIS [None]
  - SPEECH DISORDER [None]
